FAERS Safety Report 6003338-X (Version None)
Quarter: 2008Q4

REPORT INFORMATION
  Report Type: 
  Country: None (occurrence: None)
  Receive Date: 20081216
  Receipt Date: 20081120
  Transmission Date: 20090506
  Serious: No
  Sender: FDA-Public Use
  Company Number: US-BAYER-200839302NA

PATIENT
  Age: 37 Year
  Sex: Female

DRUGS (4)
  1. MAGNEVIST [Suspect]
     Indication: NUCLEAR MAGNETIC RESONANCE IMAGING BRAIN
     Dosage: TOTAL DAILY DOSE: 12 ML
     Dates: start: 20081120, end: 20081120
  2. LORTAB [Concomitant]
  3. LYRICA [Concomitant]
  4. KLONOPIN [Concomitant]

REACTIONS (2)
  - INJECTION SITE PAIN [None]
  - SENSATION OF HEAVINESS [None]
